FAERS Safety Report 26140160 (Version 1)
Quarter: 2025Q4

REPORT INFORMATION
  Report Type: Report from Study
  Country: CA (occurrence: CA)
  Receive Date: 20251210
  Receipt Date: 20251210
  Transmission Date: 20260117
  Serious: Yes (Other)
  Sender: DR REDDYS
  Company Number: CA-DRL-USA-CAN/2025/05/006990

PATIENT
  Age: 70 Year
  Sex: Female

DRUGS (3)
  1. ZOLEDRONIC ACID [Suspect]
     Active Substance: ZOLEDRONIC ACID
     Indication: Osteoporosis
     Dosage: LOT #: QDS03MA MR-2028
     Route: 065
     Dates: start: 20240125
  2. STELARA [Concomitant]
     Active Substance: USTEKINUMAB
     Indication: Product used for unknown indication
     Route: 065
  3. VitB12 [Concomitant]
     Indication: Product used for unknown indication
     Route: 065

REACTIONS (4)
  - Lower respiratory tract infection [Recovered/Resolved]
  - Nasopharyngitis [Recovering/Resolving]
  - Cough [Unknown]
  - Head discomfort [Unknown]

NARRATIVE: CASE EVENT DATE: 20250428
